FAERS Safety Report 20157050 (Version 1)
Quarter: 2021Q4

REPORT INFORMATION
  Report Type: Report from Study
  Country: US (occurrence: None)
  Receive Date: 20211207
  Receipt Date: 20211207
  Transmission Date: 20220303
  Serious: Yes (Hospitalization)
  Sender: FDA-Public Use
  Company Number: 2021A849134

PATIENT
  Sex: Male
  Weight: 67.1 kg

DRUGS (1)
  1. TAGRISSO [Suspect]
     Active Substance: OSIMERTINIB
     Indication: Lung neoplasm malignant
     Route: 048
     Dates: start: 20210907

REACTIONS (5)
  - Genital infection bacterial [Unknown]
  - Genital infection fungal [Unknown]
  - Immune system disorder [Unknown]
  - Fatigue [Unknown]
  - Decreased appetite [Unknown]
